FAERS Safety Report 11438314 (Version 1)
Quarter: 2015Q3

REPORT INFORMATION
  Report Type: Spontaneous
  Country: US (occurrence: US)
  Receive Date: 20150901
  Receipt Date: 20150901
  Transmission Date: 20151125
  Serious: Yes (Hospitalization)
  Sender: FDA-Public Use
  Company Number: US-ROCHE-1154853

PATIENT
  Sex: Female

DRUGS (4)
  1. PEGASYS [Suspect]
     Active Substance: PEGINTERFERON ALFA-2A
     Indication: CHRONIC HEPATITIS C
     Route: 065
     Dates: start: 20120726
  2. INCIVEK [Suspect]
     Active Substance: TELAPREVIR
     Indication: CHRONIC HEPATITIS C
     Route: 065
  3. COPEGUS [Suspect]
     Active Substance: RIBAVIRIN
     Indication: CHRONIC HEPATITIS C
     Route: 065
     Dates: start: 20120726
  4. BACLOFEN. [Concomitant]
     Active Substance: BACLOFEN
     Indication: BACK PAIN

REACTIONS (9)
  - Joint swelling [Recovered/Resolved]
  - Platelet count decreased [Not Recovered/Not Resolved]
  - Rash [Unknown]
  - White blood cell count decreased [Not Recovered/Not Resolved]
  - Pancreatitis [Unknown]
  - Peripheral swelling [Recovered/Resolved]
  - Ear pain [Unknown]
  - Diarrhoea [Not Recovered/Not Resolved]
  - Tongue ulceration [Unknown]
